FAERS Safety Report 4788385-8 (Version None)
Quarter: 2005Q3

REPORT INFORMATION
  Report Type: 
  Country: None (occurrence: None)
  Receive Date: 20050920
  Receipt Date: 20041018
  Transmission Date: 20060218
  Serious: Yes (Hospitalization, Other)
  Sender: FDA-Public Use
  Company Number: S04-USA-03806-01

PATIENT
  Sex: Female

DRUGS (4)
  1. CELEXA [Suspect]
     Indication: BIPOLAR DISORDER
     Dosage: 40 MG QD PO
     Route: 048
     Dates: start: 20010101
  2. CELEXA [Suspect]
     Indication: BIPOLAR DISORDER
     Dosage: 20 MG QD PO
     Route: 048
     Dates: start: 20000101, end: 20010101
  3. CELEXA [Suspect]
     Indication: BIPOLAR DISORDER
  4. NEURONTIN [Concomitant]

REACTIONS (1)
  - MANIA [None]
